FAERS Safety Report 4277002-1 (Version None)
Quarter: 2004Q1

REPORT INFORMATION
  Report Type: 
  Country: None (occurrence: None)
  Receive Date: 20040120
  Receipt Date: 20040105
  Transmission Date: 20041129
  Serious: No
  Sender: FDA-Public Use
  Company Number: 04P-044-0247090-00

PATIENT
  Age: 59 Year
  Sex: Female

DRUGS (3)
  1. HUMIRA [Suspect]
     Indication: ARTHRITIS
     Dosage: 40 MG, 1 IN 2 WK, SUBCUTANEOUS
     Route: 058
     Dates: start: 20030604, end: 20030804
  2. CELEBRA [Concomitant]
  3. ACETAMINOPHEN [Concomitant]

REACTIONS (2)
  - BONE INFECTION [None]
  - TOOTH INFECTION [None]
